FAERS Safety Report 9409606 (Version 5)
Quarter: 2013Q4

REPORT INFORMATION
  Report Type: Spontaneous
  Country: IE (occurrence: IE)
  Receive Date: 20130719
  Receipt Date: 20131211
  Transmission Date: 20140711
  Serious: Yes (Life-Threatening, Hospitalization, Other)
  Sender: FDA-Public Use
  Company Number: PHFR2013IE004063

PATIENT
  Age: 63 Year
  Sex: Male

DRUGS (6)
  1. CLOZARIL [Suspect]
     Indication: SCHIZOPHRENIA
     Dosage: UNK
     Route: 048
     Dates: start: 20050131
  2. CLOZARIL [Suspect]
     Dosage: UNK
     Dates: start: 20130715
  3. CLOZARIL [Suspect]
     Dosage: 350 MG, DAILY (50 MG MANE AND 300 MG NOCTE)
     Route: 048
     Dates: start: 2013
  4. ESOMEPRAZOLE [Concomitant]
     Dosage: 40 MG, QD
  5. PARACETAMOL [Concomitant]
     Dosage: 1 G, PRN
  6. CALVAPEN [Concomitant]
     Dosage: 666 MG, BID

REACTIONS (11)
  - Intestinal perforation [Unknown]
  - Peptic ulcer perforation [Recovered/Resolved]
  - Abdominal pain [Unknown]
  - Splenic haemorrhage [Unknown]
  - Platelet count increased [Recovering/Resolving]
  - Red blood cell count decreased [Unknown]
  - Monocyte count increased [Unknown]
  - Mean cell haemoglobin concentration decreased [Unknown]
  - Haemoglobin decreased [Unknown]
  - White blood cell count increased [Unknown]
  - Neutrophil count increased [Unknown]
